FAERS Safety Report 21990683 (Version 2)
Quarter: 2023Q4

REPORT INFORMATION
  Report Type: Spontaneous
  Country: US (occurrence: US)
  Receive Date: 20230214
  Receipt Date: 20231205
  Transmission Date: 20240110
  Serious: No
  Sender: FDA-Public Use
  Company Number: US-PFIZER INC-PV202300028317

PATIENT
  Age: 49 Year
  Sex: Female

DRUGS (10)
  1. DOCETAXEL [Suspect]
     Active Substance: DOCETAXEL\DOCETAXEL ANHYDROUS
     Indication: Triple positive breast cancer
     Dosage: 159 MG, SINGLE (CYCLE 1)
     Dates: start: 20131210, end: 20131210
  2. DOCETAXEL [Suspect]
     Active Substance: DOCETAXEL\DOCETAXEL ANHYDROUS
     Dosage: 159 MG, SINGLE (CYCLE 2)
  3. DOCETAXEL [Suspect]
     Active Substance: DOCETAXEL\DOCETAXEL ANHYDROUS
     Dosage: 157 MG, SINGLE (CYCLE 3)
     Dates: start: 201401, end: 201401
  4. DOCETAXEL [Suspect]
     Active Substance: DOCETAXEL\DOCETAXEL ANHYDROUS
     Dosage: 157 MG, SINGLE (CYCLE 4)
     Dates: start: 201402, end: 201402
  5. DOCETAXEL [Suspect]
     Active Substance: DOCETAXEL\DOCETAXEL ANHYDROUS
     Dosage: 132 MG, SINGLE (CYCLE 5)
     Dates: start: 201403, end: 201403
  6. DOCETAXEL [Suspect]
     Active Substance: DOCETAXEL\DOCETAXEL ANHYDROUS
     Dosage: 131 MG, SINGLE (CYCLE 6)
     Dates: start: 20140402, end: 20140402
  7. CARBOPLATIN [Concomitant]
     Active Substance: CARBOPLATIN
     Indication: Chemotherapy
     Dosage: UNK
  8. TRASTUZUMAB [Concomitant]
     Active Substance: TRASTUZUMAB
     Indication: Chemotherapy
     Dosage: UNK
  9. PERTUZUMAB [Concomitant]
     Active Substance: PERTUZUMAB
     Indication: Chemotherapy
     Dosage: UNK
  10. HERCEPTIN [Concomitant]
     Active Substance: TRASTUZUMAB
     Indication: Chemotherapy
     Dosage: UNK

REACTIONS (2)
  - Lacrimation increased [Not Recovered/Not Resolved]
  - Lacrimal structure injury [Not Recovered/Not Resolved]

NARRATIVE: CASE EVENT DATE: 20131201
